FAERS Safety Report 6881396-8 (Version None)
Quarter: 2010Q3

REPORT INFORMATION
  Report Type: 
  Country: None (occurrence: None)
  Receive Date: 20100728
  Receipt Date: 20100728
  Transmission Date: 20110219
  Serious: Yes (Hospitalization)
  Sender: FDA-Public Use
  Company Number: None

PATIENT
  Age: 63 Year
  Sex: Female
  Weight: 81.6475 kg

DRUGS (1)
  1. CLEOCIN [Suspect]
     Indication: CELLULITIS
     Dosage: ONE PILL EVERY 4 HOURS PO
     Route: 048
     Dates: start: 20100625, end: 20100629

REACTIONS (4)
  - DRUG INEFFECTIVE [None]
  - PRURITUS [None]
  - RASH ERYTHEMATOUS [None]
  - SKIN EXFOLIATION [None]
